FAERS Safety Report 12062165 (Version 1)
Quarter: 2016Q1

REPORT INFORMATION
  Report Type: Spontaneous
  Country: US (occurrence: US)
  Receive Date: 20160210
  Receipt Date: 20160210
  Transmission Date: 20160526
  Serious: No
  Sender: FDA-Public Use
  Company Number: US-ALLERGAN-1507508US

PATIENT
  Age: 55 Year
  Sex: Female

DRUGS (4)
  1. BOTOX COSMETIC [Suspect]
     Active Substance: ONABOTULINUMTOXINA
     Indication: SKIN WRINKLING
     Dosage: 6 UNITS, SINGLE
     Route: 030
     Dates: start: 20150422, end: 20150422
  2. BOTOX COSMETIC [Suspect]
     Active Substance: ONABOTULINUMTOXINA
     Dosage: 6 UNITS, SINGLE
     Route: 030
     Dates: start: 20140924, end: 20140924
  3. BOTOX COSMETIC [Suspect]
     Active Substance: ONABOTULINUMTOXINA
     Dosage: 12 UNITS, SINGLE
     Route: 030
     Dates: start: 20150422, end: 20150422
  4. BOTOX COSMETIC [Suspect]
     Active Substance: ONABOTULINUMTOXINA
     Dosage: 12 UNK, SINGLE
     Route: 030
     Dates: start: 20140924, end: 20140924

REACTIONS (2)
  - Injection site urticaria [Unknown]
  - Injection site urticaria [Recovered/Resolved]

NARRATIVE: CASE EVENT DATE: 20140924
